FAERS Safety Report 14076199 (Version 1)
Quarter: 2017Q4

REPORT INFORMATION
  Report Type: Spontaneous
  Country: US (occurrence: US)
  Receive Date: 20171010
  Receipt Date: 20171010
  Transmission Date: 20180321
  Serious: No
  Sender: FDA-Public Use
  Company Number: US-MYLANLABS-2017M1003613

PATIENT
  Age: 16 Year
  Sex: Male
  Weight: 86.17 kg

DRUGS (1)
  1. EPIPEN [Suspect]
     Active Substance: EPINEPHRINE
     Indication: PRODUCT USED FOR UNKNOWN INDICATION
     Dosage: UNK
     Dates: start: 20170104, end: 20170104

REACTIONS (8)
  - Injection site bruising [Unknown]
  - Feeling jittery [Unknown]
  - Disturbance in attention [Recovered/Resolved]
  - Chest pain [Recovered/Resolved]
  - Injection site pain [Unknown]
  - Accidental exposure to product [Recovered/Resolved]
  - Expired product administered [Recovered/Resolved]
  - Headache [Unknown]

NARRATIVE: CASE EVENT DATE: 20170104
